FAERS Safety Report 8219216-1 (Version None)
Quarter: 2012Q1

REPORT INFORMATION
  Report Type: 
  Country: None (occurrence: None)
  Receive Date: 20120319
  Receipt Date: 20120313
  Transmission Date: 20120608
  Serious: Yes (Hospitalization)
  Sender: FDA-Public Use
  Company Number: JP-PFIZER INC-2011019126

PATIENT
  Age: 56 Year
  Sex: Male
  Weight: 67.2 kg

DRUGS (6)
  1. TEMSIROLIMUS [Suspect]
     Indication: RENAL CELL CARCINOMA
     Dosage: 25 MG, WEEKLY
     Route: 042
     Dates: start: 20101227, end: 20110117
  2. PENTASA [Concomitant]
     Dosage: 1000 MG, 3X/DAY
     Route: 048
  3. POLARAMINE [Concomitant]
     Indication: PROPHYLAXIS
     Dosage: 5 MG, 1X/DAY
     Route: 042
  4. PREDNISOLONE [Concomitant]
     Dosage: 5 MG, 3X/DAY
     Route: 048
     Dates: start: 20110104
  5. ADALAT [Concomitant]
     Dosage: 20 MG, 3X/DAY
     Route: 048
  6. TELMISARTAN AND HYDROCHLOROTHIAZIDE [Concomitant]
     Dosage: 1 DF, 1X/DAY
     Route: 048

REACTIONS (2)
  - COLITIS ULCERATIVE [None]
  - CYTOMEGALOVIRUS ENTEROCOLITIS [None]
